FAERS Safety Report 8852854 (Version 1)
Quarter: 2012Q4

REPORT INFORMATION
  Report Type: 
  Country: US (occurrence: US)
  Receive Date: 20121022
  Receipt Date: 20121022
  Transmission Date: 20130627
  Serious: Yes (Hospitalization, Disabling, Other)
  Sender: FDA-Public Use
  Company Number: US-TEVA-365317USA

PATIENT
  Sex: Male

DRUGS (2)
  1. BUPROPION [Suspect]
     Route: 064
  2. WELLBUTRIN [Suspect]
     Route: 064

REACTIONS (3)
  - Congenital cardiovascular anomaly [Unknown]
  - Congenital anomaly [Unknown]
  - Congenital central nervous system anomaly [Unknown]
